FAERS Safety Report 5471188-9 (Version None)
Quarter: 2007Q3

REPORT INFORMATION
  Report Type: 
  Country: None (occurrence: None)
  Receive Date: 20070928
  Receipt Date: 20070611
  Transmission Date: 20080115
  Serious: No
  Sender: FDA-Public Use
  Company Number: A0655071A

PATIENT
  Age: 23 Year
  Sex: Male

DRUGS (2)
  1. FLOVENT [Suspect]
     Indication: ASTHMA
     Dosage: 110MCG PER DAY
     Route: 055
     Dates: start: 20060101
  2. MULTI-VITAMIN [Concomitant]

REACTIONS (1)
  - ALOPECIA [None]
